FAERS Safety Report 19214672 (Version 3)
Quarter: 2021Q2

REPORT INFORMATION
  Report Type: Spontaneous
  Country: US (occurrence: US)
  Receive Date: 20210504
  Receipt Date: 20210616
  Transmission Date: 20210717
  Serious: No
  Sender: FDA-Public Use
  Company Number: US-PFIZER INC-2019412813

PATIENT
  Age: 78 Year

DRUGS (1)
  1. PREMARIN [Suspect]
     Active Substance: ESTROGENS, CONJUGATED
     Dosage: 1 G, 2X/WEEK
     Route: 067

REACTIONS (6)
  - Low density lipoprotein increased [Unknown]
  - Glycosylated haemoglobin increased [Unknown]
  - Off label use [Unknown]
  - Non-high-density lipoprotein cholesterol increased [Unknown]
  - Blood glucose increased [Unknown]
  - Blood cholesterol increased [Unknown]

NARRATIVE: CASE EVENT DATE: 20210325
